FAERS Safety Report 8429820-3 (Version None)
Quarter: 2012Q2

REPORT INFORMATION
  Report Type: 
  Country: None (occurrence: None)
  Receive Date: 20120612
  Receipt Date: 20120605
  Transmission Date: 20120825
  Serious: Yes (Other)
  Sender: FDA-Public Use
  Company Number: AU-NAPPMUNDI-USA-2012-0088156

PATIENT
  Sex: Male

DRUGS (2)
  1. CHEMOTHERAPEUTICS [Concomitant]
     Indication: HODGKIN'S DISEASE
  2. MORPHINE SULFATE [Suspect]
     Indication: HODGKIN'S DISEASE

REACTIONS (2)
  - DELUSION [None]
  - PSYCHOTIC DISORDER [None]
